FAERS Safety Report 10570873 (Version 1)
Quarter: 2014Q4

REPORT INFORMATION
  Report Type: Spontaneous
  Country: US (occurrence: None)
  Receive Date: 20141106
  Receipt Date: 20141106
  Transmission Date: 20150529
  Serious: No
  Sender: FDA-Public Use
  Company Number: None

PATIENT
  Sex: Female
  Weight: 67.5 kg

DRUGS (1)
  1. BUPROPION [Suspect]
     Active Substance: BUPROPION
     Indication: DEPRESSION
     Dosage: 150 MG + DAILY + PO BID
     Route: 048
     Dates: start: 201101, end: 201301

REACTIONS (3)
  - Diarrhoea [None]
  - Abdominal pain [None]
  - Product substitution issue [None]

NARRATIVE: CASE EVENT DATE: 201101
